FAERS Safety Report 5273639-1 (Version None)
Quarter: 2007Q1

REPORT INFORMATION
  Report Type: 
  Country: None (occurrence: None)
  Receive Date: 20070323
  Receipt Date: 20060921
  Transmission Date: 20070707
  Serious: No
  Sender: FDA-Public Use
  Company Number: US-GLAXOSMITHKLINE-A0613960A

PATIENT
  Age: 85 Year
  Sex: Female

DRUGS (2)
  1. LEUKERAN [Suspect]
     Dosage: 2MG PER DAY
     Route: 048
     Dates: start: 20040101
  2. AROVIT [Concomitant]

REACTIONS (2)
  - DRUG INEFFECTIVE [None]
  - PHARMACEUTICAL PRODUCT COMPLAINT [None]
